FAERS Safety Report 9588961 (Version 1)
Quarter: 2013Q4

REPORT INFORMATION
  Report Type: Spontaneous
  Country: US (occurrence: US)
  Receive Date: 20131003
  Receipt Date: 20131003
  Transmission Date: 20140711
  Serious: No
  Sender: FDA-Public Use
  Company Number: US-AMGEN-USASP2012066910

PATIENT
  Sex: Male
  Weight: 77.1 kg

DRUGS (12)
  1. ENBREL [Suspect]
     Indication: RHEUMATOID ARTHRITIS
     Dosage: 50 MG, QWK
     Route: 058
  2. LOVAZA [Concomitant]
     Dosage: 1 MG, UNK
  3. FOLIC ACID ALMUS [Concomitant]
     Dosage: UNK
  4. LORATADINE [Concomitant]
     Dosage: 10 MG, UNK
  5. RAMIPRIL [Concomitant]
     Dosage: 10 MG, UNK
  6. METFORMIN [Concomitant]
     Dosage: 500 MG, UNK
  7. IBUPROFEN [Concomitant]
     Dosage: 200 MG, UNK
  8. OMEPRAZOLE [Concomitant]
     Dosage: 20 MG, UNK
  9. METHOTREXATE [Concomitant]
     Dosage: 2.5 MG, UNK
  10. ASA [Concomitant]
     Dosage: 81 MG, UNK
  11. VITAMIN D                          /00107901/ [Concomitant]
     Dosage: 400 UNIT
  12. SIMVASTATIN [Concomitant]
     Dosage: 40 MG, UNK

REACTIONS (1)
  - Bleeding time prolonged [Unknown]
